FAERS Safety Report 8093284-2 (Version None)
Quarter: 2012Q1

REPORT INFORMATION
  Report Type: 
  Country: None (occurrence: None)
  Receive Date: 20120128
  Receipt Date: 20110915
  Transmission Date: 20120608
  Serious: Yes (Other)
  Sender: FDA-Public Use
  Company Number: US-ABBOTT-11P-163-0835219-00

PATIENT
  Age: 35 Year
  Sex: Female

DRUGS (4)
  1. TESTOSTERONE [Concomitant]
     Indication: PRODUCT USED FOR UNKNOWN INDICATION
     Dosage: APPLIED DAILY TO SKIN
     Route: 061
  2. HUMIRA [Suspect]
     Indication: PSORIASIS
     Dates: start: 20090401
  3. BI-EST 50/50 SR [Concomitant]
     Indication: HORMONE REPLACEMENT THERAPY
     Dosage: 1.2 MG EVERY MORNING
  4. VIVELLE [Concomitant]
     Indication: HORMONE REPLACEMENT THERAPY
     Dosage: PATCH
     Route: 062
     Dates: start: 20100701

REACTIONS (4)
  - HYSTERECTOMY [None]
  - PSORIASIS [None]
  - HOT FLUSH [None]
  - HEADACHE [None]
